FAERS Safety Report 8727544 (Version 2)
Quarter: 2012Q4

REPORT INFORMATION
  Report Type: 
  Country: US (occurrence: US)
  Receive Date: 20120816
  Receipt Date: 20121120
  Transmission Date: 20130627
  Serious: No
  Sender: FDA-Public Use
  Company Number: US-ALLERGAN-1210234US

PATIENT
  Sex: Female

DRUGS (1)
  1. LASTACAFT [Suspect]
     Indication: OCULAR ITCHING
     Dosage: UNK UNK, unknown
     Route: 047

REACTIONS (1)
  - Dizziness [Recovered/Resolved]
